FAERS Safety Report 15318512 (Version 1)
Quarter: 2018Q3

REPORT INFORMATION
  Report Type: Spontaneous
  Country: US (occurrence: US)
  Receive Date: 20180817
  Receipt Date: 20180817
  Transmission Date: 20181010
  Serious: No
  Sender: FDA-Public Use
  Company Number: None

PATIENT
  Sex: Female
  Weight: 56.7 kg

DRUGS (3)
  1. FORTEO [Suspect]
     Active Substance: TERIPARATIDE
     Indication: BONE DENSITY ABNORMAL
  2. FORTEO [Suspect]
     Active Substance: TERIPARATIDE
     Indication: SENILE OSTEOPOROSIS
     Route: 058
     Dates: start: 201807
  3. FORTEO [Suspect]
     Active Substance: TERIPARATIDE
     Indication: BONE DENSITY ABNORMAL
     Route: 058
     Dates: start: 201807

REACTIONS (2)
  - Fall [None]
  - Ankle fracture [None]
